FAERS Safety Report 5778942-4 (Version None)
Quarter: 2008Q2

REPORT INFORMATION
  Report Type: 
  Country: None (occurrence: None)
  Receive Date: 20080619
  Receipt Date: 20080613
  Transmission Date: 20081010
  Serious: Yes (Hospitalization)
  Sender: FDA-Public Use
  Company Number: US-BRISTOL-MYERS SQUIBB COMPANY-14192637

PATIENT
  Age: 58 Year
  Sex: Male
  Weight: 87 kg

DRUGS (3)
  1. CETUXIMAB [Suspect]
     Indication: TONGUE NEOPLASM MALIGNANT STAGE UNSPECIFIED
     Route: 042
     Dates: start: 20080311
  2. CISPLATIN [Suspect]
     Indication: TONGUE NEOPLASM MALIGNANT STAGE UNSPECIFIED
     Dosage: MOST RECENT ADMINISTRATION PRIOR TO HOSPITALIZATION WAS 27-MAY-2008.
     Route: 042
     Dates: start: 20080527
  3. RADIATION THERAPY [Suspect]
     Indication: TONGUE NEOPLASM MALIGNANT STAGE UNSPECIFIED

REACTIONS (6)
  - BLOOD GLUCOSE INCREASED [None]
  - HEART RATE IRREGULAR [None]
  - MUCOSAL INFLAMMATION [None]
  - NAUSEA [None]
  - VOMITING [None]
  - WEIGHT DECREASED [None]
